FAERS Safety Report 26115053 (Version 1)
Quarter: 2025Q4

REPORT INFORMATION
  Report Type: Spontaneous
  Country: GB (occurrence: GB)
  Receive Date: 20251203
  Receipt Date: 20251203
  Transmission Date: 20260118
  Serious: Yes (Disabling)
  Sender: RANBAXY
  Company Number: GB-MHRA-MED-202511180527128540-TKRSD

PATIENT
  Sex: Female

DRUGS (1)
  1. SERTRALINE [Suspect]
     Active Substance: SERTRALINE HYDROCHLORIDE
     Indication: Insomnia
     Dosage: 150 MILLIGRAM
     Route: 065
     Dates: start: 2019

REACTIONS (1)
  - Atypical migraine [Not Recovered/Not Resolved]

NARRATIVE: CASE EVENT DATE: 20190101
